FAERS Safety Report 8576046-9 (Version None)
Quarter: 2012Q3

REPORT INFORMATION
  Report Type: 
  Country: None (occurrence: None)
  Receive Date: 20120725
  Receipt Date: 20120712
  Transmission Date: 20120928
  Serious: Yes (Other)
  Sender: FDA-Public Use
  Company Number: 201207000088

PATIENT
  Age: 4 Month
  Sex: Female

DRUGS (1)
  1. INOMAX [Suspect]
     Indication: PRODUCT USED FOR UNKNOWN INDICATION
     Dosage: 20 PPM, CONTINUOUS, INHALATION
     Route: 055
     Dates: start: 20120711

REACTIONS (3)
  - COMPLICATION OF DEVICE INSERTION [None]
  - SURGERY [None]
  - OXYGEN SATURATION DECREASED [None]
